FAERS Safety Report 6421891-9 (Version None)
Quarter: 2009Q4

REPORT INFORMATION
  Report Type: 
  Country: None (occurrence: None)
  Receive Date: 20091030
  Receipt Date: 20091028
  Transmission Date: 20100525
  Serious: Yes (Hospitalization)
  Sender: FDA-Public Use
  Company Number: CH-BAYER-200937121GPV

PATIENT
  Age: 77 Year
  Sex: Male

DRUGS (3)
  1. ASPIRIN [Suspect]
     Indication: DRUG USE FOR UNKNOWN INDICATION
     Route: 048
     Dates: end: 20090305
  2. CARVEDILOL [Concomitant]
     Route: 048
  3. OXAZEPAM [Concomitant]

REACTIONS (2)
  - ABASIA [None]
  - SUBDURAL HAEMORRHAGE [None]
